FAERS Safety Report 21768647 (Version 1)
Quarter: 2022Q4

REPORT INFORMATION
  Report Type: Spontaneous
  Country: CH (occurrence: CH)
  Receive Date: 20221222
  Receipt Date: 20221222
  Transmission Date: 20230112
  Serious: Yes (Hospitalization)
  Sender: FDA-Public Use
  Company Number: None

PATIENT
  Age: 64 Year
  Sex: Male

DRUGS (12)
  1. AVASTIN [Suspect]
     Active Substance: BEVACIZUMAB
     Indication: Hepatocellular carcinoma
     Dosage: BEVACIZUMAB 1000 MG INTRAVENOUS APPLICATION FROM 18.07.2022 STOPPED IM NOVEMBER 2022
     Route: 042
     Dates: start: 20220718, end: 202211
  2. TECENTRIQ [Suspect]
     Active Substance: ATEZOLIZUMAB
     Indication: Hepatocellular carcinoma
     Dosage: ATEZOLIZUMAB 1200 MG INTRAVENOUS APPLICATION FROM 18.07.2022 BIS AUF WEITERES
     Route: 042
     Dates: start: 20220718
  3. RAMIPRIL [Concomitant]
     Active Substance: RAMIPRIL
     Dosage: CO-RAMIPRIL SANDOZ (RAMIPRIL, HYDROCHLOROTHIAZID) 5/12.5 MG 1-0-0-0 IM NOVEMBER 2022 WECHSEL AUF.
     Route: 048
     Dates: end: 202211
  4. ACTIVATED CHARCOAL\DIMETHICONE [Concomitant]
     Active Substance: ACTIVATED CHARCOAL\DIMETHICONE
     Dosage: FLATULEX (SIMETICON) IN RESERVE ; AS NECESSARY
     Route: 048
  5. OZEMPIC [Concomitant]
     Active Substance: SEMAGLUTIDE
     Dosage: OZEMPIC (SEMAGLUTID) 0.25 MG 1X/WOCHE, SUBKUTAN, VERMUTLICH ENDE JULI 2022 GESTOPPT
     Route: 058
     Dates: end: 202207
  6. SODIUM PICOSULFATE [Concomitant]
     Active Substance: SODIUM PICOSULFATE
     Dosage: LAXOBERON (NATRIUMPICOSULFAT) 1X/WOCHE CA. IN RESERVE ; AS NECESSARY
     Route: 048
  7. METOPROLOL SUCCINATE [Concomitant]
     Active Substance: METOPROLOL SUCCINATE
     Dosage: METO ZEROK (METOPROLOL) 25 MG 1-0-0-0
     Route: 048
  8. VEMLIDY [Concomitant]
     Active Substance: TENOFOVIR ALAFENAMIDE FUMARATE
     Dosage: VEMLIDY (TENOFOVIR ALAFENAMID) 25 MG 1-0-0-0
     Route: 048
  9. INSULIN GLARGINE [Concomitant]
     Active Substance: INSULIN GLARGINE
     Dosage: INSULIN TOUJEO(INSULIN GLARGIN) IE 18 /TAG SUBKUTAN
     Route: 058
  10. OLODATEROL HYDROCHLORIDE\TIOTROPIUM BROMIDE MONOHYDRATE [Concomitant]
     Active Substance: OLODATEROL HYDROCHLORIDE\TIOTROPIUM BROMIDE MONOHYDRATE
     Dosage: SPIOLTO RESPIMAT (TIOTROPIUM, OLODATEROL) 2.5MG 2-0-0-0, INHALATIV
     Route: 055
  11. ZINC [Concomitant]
     Active Substance: ZINC
     Dosage: ZINK BURGERSTEIN (ZINK) 30MG 1-0-0-0
     Route: 048
  12. DAFALGAN [Concomitant]
     Active Substance: ACETAMINOPHEN
     Dosage: DAFALGAN (PARACETAMOL) IN RESERVE ; AS NECESSARY
     Route: 048

REACTIONS (4)
  - Pancytopenia [Recovering/Resolving]
  - Pneumonitis [Recovering/Resolving]
  - Pulmonary haemorrhage [Recovering/Resolving]
  - Nephrotic syndrome [Recovering/Resolving]

NARRATIVE: CASE EVENT DATE: 20220731
